FAERS Safety Report 5370464-8 (Version None)
Quarter: 2007Q2

REPORT INFORMATION
  Report Type: 
  Country: None (occurrence: None)
  Receive Date: 20070626
  Receipt Date: 20070309
  Transmission Date: 20071010
  Serious: No
  Sender: FDA-Public Use
  Company Number: US-AMGEN-US214408

PATIENT
  Sex: Female
  Weight: 50.8 kg

DRUGS (2)
  1. ARANESP [Suspect]
     Indication: ANAEMIA OF MALIGNANT DISEASE
     Route: 058
     Dates: start: 20030301
  2. PREDNISONE TAB [Concomitant]
     Route: 065

REACTIONS (1)
  - ANAEMIA [None]
